FAERS Safety Report 18494815 (Version 1)
Quarter: 2020Q4

REPORT INFORMATION
  Report Type: Spontaneous
  Country: US (occurrence: US)
  Receive Date: 20201111
  Receipt Date: 20201111
  Transmission Date: 20210114
  Serious: No
  Sender: FDA-Public Use
  Company Number: None

PATIENT
  Age: 66 Year
  Sex: Female
  Weight: 88 kg

DRUGS (1)
  1. BUPIVACAINE/DEXTROSE (BUPIVACAINE HCL 0.75%/DEXTROSE 8.25% INJ) [Suspect]
     Active Substance: BUPIVACAINE\DEXTROSE
     Dates: start: 20201027, end: 20201027

REACTIONS (1)
  - Treatment failure [None]

NARRATIVE: CASE EVENT DATE: 20201027
